FAERS Safety Report 4622133-7 (Version None)
Quarter: 2005Q1

REPORT INFORMATION
  Report Type: 
  Country: None (occurrence: None)
  Receive Date: 20050329
  Receipt Date: 20030410
  Transmission Date: 20050727
  Serious: No
  Sender: FDA-Public Use
  Company Number: 5399

PATIENT
  Age: 49 Year
  Sex: Female

DRUGS (7)
  1. PAMIDRONATE DISODIUM [Suspect]
     Indication: METASTASES TO BONE
     Dosage: 90 MG PER MINUTE IV
     Route: 042
     Dates: start: 19970601, end: 19981001
  2. PAMIDRONATE DISODIUM [Suspect]
     Indication: METASTASES TO BONE
     Dosage: 180 MG PER MINUTE IV
     Route: 042
     Dates: start: 19981001, end: 19990101
  3. PAMIDRONATE DISODIUM [Suspect]
     Indication: METASTASES TO BONE
     Dosage: 110 MG WEEKY IV
     Route: 042
     Dates: start: 19990101, end: 20000501
  4. TAMOXIFEN CITRATE [Concomitant]
  5. FULVESTRANT [Concomitant]
  6. ANASTRAZOLE [Concomitant]
  7. HERCEPTIN [Concomitant]

REACTIONS (4)
  - METASTASES TO CENTRAL NERVOUS SYSTEM [None]
  - NEPHROTIC SYNDROME [None]
  - OOPHORECTOMY BILATERAL [None]
  - RENAL FAILURE [None]
